FAERS Safety Report 13466654 (Version 1)
Quarter: 2017Q2

REPORT INFORMATION
  Report Type: Spontaneous
  Country: US (occurrence: US)
  Receive Date: 20170421
  Receipt Date: 20170421
  Transmission Date: 20170830
  Serious: No
  Sender: FDA-Public Use
  Company Number: US-TEVA-693619USA

PATIENT
  Age: 65 Year
  Sex: Female
  Weight: 61.29 kg

DRUGS (7)
  1. ACIDOPHILUS [Concomitant]
     Active Substance: LACTOBACILLUS ACIDOPHILUS
  2. VITAMIN C [Concomitant]
     Active Substance: ASCORBIC ACID
  3. OMEPRAZOLE. [Concomitant]
     Active Substance: OMEPRAZOLE
     Dosage: 20 MILLIGRAM DAILY;
  4. MULTIVITAMINS [Concomitant]
     Active Substance: VITAMINS
  5. IBANDRONATE SODIUM. [Suspect]
     Active Substance: IBANDRONATE SODIUM
     Indication: OSTEOPOROSIS
     Route: 065
     Dates: start: 201506, end: 201609
  6. LACTAID [Concomitant]
     Active Substance: LACTASE
  7. BAYER LOW DOSE [Concomitant]
     Active Substance: ASPIRIN

REACTIONS (4)
  - Abdominal tenderness [Unknown]
  - Abdominal pain upper [Recovered/Resolved]
  - Bronchitis [Recovered/Resolved]
  - Pharyngitis [Recovered/Resolved]

NARRATIVE: CASE EVENT DATE: 201607
